FAERS Safety Report 6428117-0 (Version None)
Quarter: 2009Q4

REPORT INFORMATION
  Report Type: 
  Country: None (occurrence: None)
  Receive Date: 20091030
  Receipt Date: 20091022
  Transmission Date: 20100525
  Serious: Yes (Other)
  Sender: FDA-Public Use
  Company Number: GXKR2009GB11596

PATIENT
  Age: 59 Year
  Sex: Female
  Weight: 83 kg

DRUGS (9)
  1. CEFUROXIME [Suspect]
     Indication: INFECTION
     Dosage: 7.5 MG, INTRAVENOUS
     Route: 042
     Dates: start: 20090507, end: 20090804
  2. TEICOPLANIN (TEICOPLANIN) [Suspect]
     Indication: INFECTION
     Dosage: 200 MG, INTRAVENOUS
     Route: 042
     Dates: start: 20090507, end: 20090804
  3. AMITRIPTYLINE HYDROCHLORIDE [Concomitant]
  4. GLICLAZIDE (GLICLAZIDE) [Concomitant]
  5. LYRICA [Concomitant]
  6. MORPHINE SULFATE INJ [Concomitant]
  7. OMEPRAZOLE [Concomitant]
  8. PIOGLITAZONE HCL [Concomitant]
  9. SIMVASTATIN [Concomitant]

REACTIONS (3)
  - DIPLOPIA [None]
  - METAMORPHOPSIA [None]
  - RENAL IMPAIRMENT [None]
